FAERS Safety Report 19989158 (Version 1)
Quarter: 2021Q4

REPORT INFORMATION
  Report Type: Spontaneous
  Country: US (occurrence: US)
  Receive Date: 20211025
  Receipt Date: 20211025
  Transmission Date: 20220303
  Serious: No
  Sender: FDA-Public Use
  Company Number: US-SA-SAC20211015000908

PATIENT
  Sex: Male

DRUGS (2)
  1. DUPIXENT [Suspect]
     Active Substance: DUPILUMAB
     Indication: Dermatitis atopic
     Dosage: 300 MG, QOW
     Route: 058
     Dates: start: 20210203
  2. AQUAPHILIC [Concomitant]

REACTIONS (6)
  - Dermatitis atopic [Unknown]
  - Skin irritation [Unknown]
  - Skin swelling [Unknown]
  - Stress [Unknown]
  - Sleep deficit [Unknown]
  - Skin exfoliation [Unknown]
